FAERS Safety Report 25070676 (Version 2)
Quarter: 2025Q1

REPORT INFORMATION
  Report Type: Spontaneous
  Country: US (occurrence: US)
  Receive Date: 20250312
  Receipt Date: 20250324
  Transmission Date: 20250408
  Serious: No
  Sender: SANOFI AVENTIS
  Company Number: US-SA-2025SA072243

PATIENT
  Age: 89 Year
  Sex: Male

DRUGS (1)
  1. DUPIXENT [Suspect]
     Active Substance: DUPILUMAB
     Indication: Chronic obstructive pulmonary disease
     Dosage: 300 MG, QOW
     Route: 058
     Dates: start: 20250124, end: 20250318

REACTIONS (6)
  - Dry mouth [Not Recovered/Not Resolved]
  - Swollen tongue [Recovering/Resolving]
  - Condition aggravated [Recovering/Resolving]
  - Glossodynia [Unknown]
  - Speech disorder [Unknown]
  - Throat tightness [Recovered/Resolved]

NARRATIVE: CASE EVENT DATE: 20250101
